FAERS Safety Report 6125270-3 (Version None)
Quarter: 2009Q1

REPORT INFORMATION
  Report Type: 
  Country: None (occurrence: None)
  Receive Date: 20090320
  Receipt Date: 20090311
  Transmission Date: 20090719
  Serious: Yes (Hospitalization)
  Sender: FDA-Public Use
  Company Number: PHHY2009GB07304

PATIENT
  Sex: Female
  Weight: 43.4 kg

DRUGS (6)
  1. CLOZARIL [Suspect]
     Indication: SCHIZOPHRENIA
     Dosage: 100 MG, BID
     Route: 048
     Dates: start: 20090205, end: 20090227
  2. CLOZARIL [Suspect]
     Dosage: 50 MG, BID
     Route: 048
  3. CLOZARIL [Suspect]
     Dosage: 75 MG, BID
     Route: 048
  4. ZOPICLONE [Concomitant]
     Indication: SEDATION
     Dosage: 3.75 MG
     Route: 048
  5. DIAZEPAM [Concomitant]
     Indication: AGITATION
     Dosage: 2 MG, TID
  6. OLANZAPINE [Concomitant]
     Indication: PSYCHOTIC DISORDER
     Dosage: 5 MG
     Route: 048

REACTIONS (5)
  - BUNDLE BRANCH BLOCK RIGHT [None]
  - ELECTROCARDIOGRAM ABNORMAL [None]
  - ENDOCARDITIS [None]
  - PERICARDITIS [None]
  - TACHYCARDIA [None]
